FAERS Safety Report 25262500 (Version 1)
Quarter: 2025Q2

REPORT INFORMATION
  Report Type: Spontaneous
  Country: US (occurrence: US)
  Receive Date: 20250502
  Receipt Date: 20250502
  Transmission Date: 20250717
  Serious: No
  Sender: BAUSCH AND LOMB
  Company Number: US-BAUSCHBL-2025BNL007342

PATIENT
  Age: 85 Year
  Sex: Male

DRUGS (1)
  1. ALAWAY [Suspect]
     Active Substance: KETOTIFEN FUMARATE
     Indication: Product used for unknown indication
     Dosage: 1 DROP IN AFFECTED EYE, TWICE A DAY
     Route: 047

REACTIONS (3)
  - Pruritus [Unknown]
  - Seasonal allergy [Unknown]
  - Drug ineffective [Unknown]
